FAERS Safety Report 5918040-X (Version None)
Quarter: 2008Q4

REPORT INFORMATION
  Report Type: 
  Country: None (occurrence: None)
  Receive Date: 20081014
  Receipt Date: 20081006
  Transmission Date: 20090506
  Serious: Yes (Other)
  Sender: FDA-Public Use
  Company Number: US-ELI_LILLY_AND_COMPANY-US200810001617

PATIENT
  Sex: Female
  Weight: 54.422 kg

DRUGS (3)
  1. BYETTA [Suspect]
     Indication: TYPE 2 DIABETES MELLITUS
     Dosage: 10 UG, 2/D
     Route: 058
     Dates: start: 20080401, end: 20080901
  2. INSULIN [Concomitant]
     Indication: TYPE 2 DIABETES MELLITUS
     Dosage: 10 U, EACH EVENING
  3. ANTI-DIABETICS [Concomitant]
     Indication: TYPE 2 DIABETES MELLITUS
     Dosage: UNK, UNKNOWN
     Dates: start: 20080901

REACTIONS (5)
  - BLOOD GLUCOSE DECREASED [None]
  - NAUSEA [None]
  - SYNCOPE [None]
  - VISUAL ACUITY REDUCED [None]
  - VOMITING [None]
